FAERS Safety Report 15030974 (Version 2)
Quarter: 2018Q4

REPORT INFORMATION
  Report Type: Spontaneous
  Country: FR (occurrence: FR)
  Receive Date: 20180619
  Receipt Date: 20181024
  Transmission Date: 20190204
  Serious: Yes (Life-Threatening)
  Sender: FDA-Public Use
  Company Number: FR-MYLANLABS-2018M1041245

PATIENT
  Age: 54 Year
  Sex: Male
  Weight: 95.8 kg

DRUGS (7)
  1. LARGACTIL                          /00011901/ [Concomitant]
     Active Substance: CHLORPROMAZINE
     Indication: PRODUCT USED FOR UNKNOWN INDICATION
     Dosage: UNK
  2. AMIKACIN. [Suspect]
     Active Substance: AMIKACIN
     Indication: SEPTIC SHOCK
     Dosage: 2 G, UNK
     Route: 042
  3. HEPARINE                           /00027701/ [Concomitant]
     Active Substance: HEPARIN SODIUM
     Indication: THROMBOSIS PROPHYLAXIS
     Dosage: UNK
  4. AMIKACIN. [Suspect]
     Active Substance: AMIKACIN
     Dosage: 2 G, UNK
     Route: 042
  5. VANCOMYCIN [Suspect]
     Active Substance: VANCOMYCIN
     Dosage: 2 G, UNK
     Route: 042
  6. PIPERACILLIN/TAZOBACTAM [Suspect]
     Active Substance: PIPERACILLIN SODIUM\TAZOBACTAM SODIUM
     Indication: SEPTIC SHOCK
     Dosage: 8 G, UNK
     Route: 042
  7. VANCOMYCIN [Suspect]
     Active Substance: VANCOMYCIN
     Indication: SEPTIC SHOCK
     Dosage: 2 G, UNK
     Route: 042

REACTIONS (1)
  - Red man syndrome [Recovered/Resolved]

NARRATIVE: CASE EVENT DATE: 20180224
